FAERS Safety Report 4871057-9 (Version None)
Quarter: 2006Q1

REPORT INFORMATION
  Report Type: 
  Country: None (occurrence: None)
  Receive Date: 20060103
  Receipt Date: 20040519
  Transmission Date: 20060701
  Serious: Yes (Hospitalization)
  Sender: FDA-Public Use
  Company Number: DE-BRISTOL-MYERS SQUIBB COMPANY-12592838

PATIENT
  Age: 75 Year
  Sex: Female
  Weight: 70 kg

DRUGS (3)
  1. BLINDED: IRBESARTAN [Suspect]
     Indication: HYPERTENSION
     Dates: start: 20031121
  2. BLINDED: PLACEBO [Suspect]
     Indication: HYPERTENSION
     Dates: start: 20031121
  3. BLINDED: PHENPROCOUMON [Suspect]
     Indication: PROPHYLAXIS
     Dates: start: 20031121

REACTIONS (5)
  - CONCUSSION [None]
  - DEMENTIA [None]
  - FALL [None]
  - HAEMATOMA [None]
  - HALLUCINATION [None]
